FAERS Safety Report 6154337-9 (Version None)
Quarter: 2009Q2

REPORT INFORMATION
  Report Type: 
  Country: None (occurrence: None)
  Receive Date: 20090414
  Receipt Date: 20090330
  Transmission Date: 20091009
  Serious: Yes (Other)
  Sender: FDA-Public Use
  Company Number: GB-GENENTECH-225181

PATIENT
  Sex: Female

DRUGS (18)
  1. MABTHERA [Suspect]
     Indication: SYSTEMIC LUPUS ERYTHEMATOSUS
     Dosage: 375 MG/M2, 1/WEEK
     Route: 042
     Dates: start: 20020801, end: 20050901
  2. MABTHERA [Suspect]
     Dosage: 375 MG/M2, 1/WEEK
     Dates: start: 20050401, end: 20050501
  3. MABTHERA [Suspect]
     Dosage: 375 MG/M2, SINGLE
     Dates: start: 20051101
  4. AZATHIOPRINE [Suspect]
     Indication: SYSTEMIC LUPUS ERYTHEMATOSUS
  5. CYCLOPHOSPHAMIDE [Suspect]
     Indication: SYSTEMIC LUPUS ERYTHEMATOSUS
     Route: 048
  6. PREDNISOLONE [Suspect]
     Indication: SYSTEMIC LUPUS ERYTHEMATOSUS
     Dates: start: 20020601, end: 20030601
  7. CORTICOSTEROIDS (UNK INGREDIENTS) [Suspect]
     Indication: SYSTEMIC LUPUS ERYTHEMATOSUS
  8. AMLODIPINE [Concomitant]
     Indication: RAYNAUD'S PHENOMENON
     Dosage: 5 MG, QOD
     Route: 048
     Dates: start: 20020601
  9. CALCICHEW D3 [Concomitant]
     Indication: OSTEOPOROSIS
     Dosage: 1 UNK, BID
     Route: 048
     Dates: start: 20030601
  10. HYDROXYCHLOROQUINE SULFATE [Concomitant]
     Indication: SYSTEMIC LUPUS ERYTHEMATOSUS
     Dosage: 300 MG, UNK
     Route: 048
     Dates: start: 20020601
  11. THYROXINE [Concomitant]
     Indication: HYPOTHYROIDISM
     Dosage: 75 A?G, UNK
     Dates: start: 19900601
  12. CLARITIN [Concomitant]
     Indication: HYPERSENSITIVITY
     Dosage: 1 UNK, QOD
     Route: 048
     Dates: start: 20040615
  13. NUVELLE [Concomitant]
     Indication: PREMATURE MENOPAUSE
     Dosage: 1 UNK, QOD
     Dates: start: 19930601
  14. FOLIC ACID [Concomitant]
     Indication: DRUG USE FOR UNKNOWN INDICATION
     Route: 048
  15. IMMUNE GLOBULIN INTRAVENOUS (HUMAN) [Concomitant]
     Indication: DRUG USE FOR UNKNOWN INDICATION
  16. LEVOMEPROMAZINE [Concomitant]
     Indication: DRUG USE FOR UNKNOWN INDICATION
     Route: 048
  17. PROBENECID [Concomitant]
     Indication: DRUG USE FOR UNKNOWN INDICATION
  18. PREDNISOLONE [Concomitant]
     Dates: start: 20020101, end: 20030101

REACTIONS (1)
  - PROGRESSIVE MULTIFOCAL LEUKOENCEPHALOPATHY [None]
